FAERS Safety Report 7825011-5 (Version None)
Quarter: 2011Q4

REPORT INFORMATION
  Report Type: 
  Country: None (occurrence: None)
  Receive Date: 20111019
  Receipt Date: 20111013
  Transmission Date: 20120403
  Serious: Yes (Hospitalization, Disabling, Other)
  Sender: FDA-Public Use
  Company Number: US-MERCK-1107USA00010

PATIENT
  Age: 36 Year
  Sex: Female
  Weight: 63 kg

DRUGS (8)
  1. FOSAMAX [Suspect]
     Route: 048
     Dates: start: 19970828, end: 19980812
  2. FOSAMAX [Suspect]
     Route: 048
     Dates: start: 19970828, end: 19980812
  3. CALCIUM (UNSPECIFIED) [Concomitant]
     Route: 065
     Dates: start: 19880101
  4. FOSAMAX [Suspect]
     Indication: OSTEOPOROSIS
     Route: 048
     Dates: start: 20010913, end: 20060609
  5. FOSAMAX [Suspect]
     Indication: OSTEOPENIA
     Route: 048
     Dates: start: 20010913, end: 20060609
  6. FOSAMAX PLUS D [Suspect]
     Indication: OSTEOPENIA
     Route: 048
     Dates: start: 20050101, end: 20080804
  7. VITAMINS (UNSPECIFIED) [Concomitant]
     Route: 065
     Dates: start: 19800101
  8. ASCORBIC ACID [Concomitant]
     Route: 065
     Dates: start: 19800101

REACTIONS (31)
  - BONE ABSCESS [None]
  - HYPERCALCIURIA [None]
  - HYDRONEPHROSIS [None]
  - RADICULITIS LUMBOSACRAL [None]
  - LUMBAR RADICULOPATHY [None]
  - INTERVERTEBRAL DISC DISORDER [None]
  - NEOPLASM [None]
  - GINGIVAL DISORDER [None]
  - LOW TURNOVER OSTEOPATHY [None]
  - PAIN [None]
  - HERPES VIRUS INFECTION [None]
  - MYALGIA [None]
  - FALL [None]
  - BACK DISORDER [None]
  - SQUAMOUS CELL CARCINOMA [None]
  - IMPAIRED HEALING [None]
  - ARTHRALGIA [None]
  - NEURITIS [None]
  - GINGIVAL RECESSION [None]
  - BRONCHITIS [None]
  - PAIN IN EXTREMITY [None]
  - MENISCUS LESION [None]
  - LARYNGITIS [None]
  - FEMUR FRACTURE [None]
  - ARTHROPATHY [None]
  - NEPHROLITHIASIS [None]
  - SPINAL DISORDER [None]
  - CALCIUM DEFICIENCY [None]
  - OSTEOARTHRITIS [None]
  - TOOTH FRACTURE [None]
  - RIB FRACTURE [None]
